FAERS Safety Report 6905160-6 (Version None)
Quarter: 2010Q3

REPORT INFORMATION
  Report Type: 
  Country: None (occurrence: None)
  Receive Date: 20100804
  Receipt Date: 20091208
  Transmission Date: 20110219
  Serious: No
  Sender: FDA-Public Use
  Company Number: US-PFIZER INC-2009172785

PATIENT
  Sex: Male
  Weight: 86.6 kg

DRUGS (5)
  1. LYRICA [Suspect]
     Indication: SCIATICA
     Dosage: 75 MG, 3X/DAY
     Dates: start: 20040101
  2. GABAPENTIN [Suspect]
     Indication: HEADACHE
     Dosage: 300 MG, 3X/DAY
     Route: 048
     Dates: start: 19990101
  3. GABAPENTIN [Suspect]
     Indication: SCIATIC NERVE INJURY
  4. PROTONIX [Concomitant]
     Dosage: UNK
  5. NAPROXEN [Concomitant]
     Dosage: UNK

REACTIONS (3)
  - DRUG INEFFECTIVE [None]
  - PAIN [None]
  - SCIATIC NERVE INJURY [None]
